FAERS Safety Report 7754456-7 (Version None)
Quarter: 2011Q3

REPORT INFORMATION
  Report Type: 
  Country: None (occurrence: None)
  Receive Date: 20110915
  Receipt Date: 20110906
  Transmission Date: 20111222
  Serious: Yes (Death)
  Sender: FDA-Public Use
  Company Number: US-CELGENEUS-163-21880-11053026

PATIENT
  Sex: Male

DRUGS (5)
  1. NUCYNTA [Concomitant]
     Route: 065
  2. OXYCODONE HCL [Concomitant]
     Route: 065
  3. COUMADIN [Concomitant]
     Route: 065
  4. REVLIMID [Suspect]
     Dosage: 25 MILLIGRAM
     Route: 048
     Dates: start: 20110506, end: 20110501
  5. TERAZOSIN HCL [Concomitant]
     Route: 065

REACTIONS (1)
  - MULTIPLE MYELOMA [None]
